FAERS Safety Report 4896303-7 (Version None)
Quarter: 2006Q1

REPORT INFORMATION
  Report Type: 
  Country: None (occurrence: None)
  Receive Date: 20060131
  Receipt Date: 20060120
  Transmission Date: 20060701
  Serious: Yes (Hospitalization)
  Sender: FDA-Public Use
  Company Number: CA-JNJFOC-20060105082

PATIENT
  Sex: Male
  Weight: 72.12 kg

DRUGS (3)
  1. RISPERDAL [Suspect]
     Indication: SCHIZOPHRENIA
  2. BENZOTROPINE [Concomitant]
  3. PROMAZINE HCL [Concomitant]

REACTIONS (2)
  - HOSPITALISATION [None]
  - WEIGHT DECREASED [None]
